FAERS Safety Report 6017450-2 (Version None)
Quarter: 2008Q4

REPORT INFORMATION
  Report Type: 
  Country: None (occurrence: None)
  Receive Date: 20081223
  Receipt Date: 20081219
  Transmission Date: 20090506
  Serious: Yes (Hospitalization)
  Sender: FDA-Public Use
  Company Number: FR-NOVOPROD-282358

PATIENT
  Age: 71 Year
  Sex: Female
  Weight: 73 kg

DRUGS (9)
  1. LEVEMIR [Suspect]
     Indication: TYPE 2 DIABETES MELLITUS
  2. HUMALOG [Suspect]
     Indication: TYPE 2 DIABETES MELLITUS
  3. KARDEGIC                           /00002703/ [Suspect]
     Indication: DRUG USE FOR UNKNOWN INDICATION
  4. COTAREG [Suspect]
     Indication: DRUG USE FOR UNKNOWN INDICATION
     Dosage: 1 TAB, QD
     Route: 048
  5. ALDACTONE [Suspect]
     Indication: DRUG USE FOR UNKNOWN INDICATION
     Dosage: 50 MG, QD
     Route: 048
  6. ISOPTIN [Concomitant]
  7. TIAPRIDAL                          /00435701/ [Concomitant]
  8. ANTIINFLAMMATORY AGENTS, NON-STEROIDS [Concomitant]
     Indication: OSTEOARTHRITIS
  9. IXPRIM [Concomitant]
     Dosage: 18 IU, BID
     Route: 058

REACTIONS (2)
  - HYPERKALAEMIA [None]
  - RENAL FAILURE ACUTE [None]
